FAERS Safety Report 25044090 (Version 2)
Quarter: 2025Q2

REPORT INFORMATION
  Report Type: Spontaneous
  Country: PT (occurrence: PT)
  Receive Date: 20250306
  Receipt Date: 20250530
  Transmission Date: 20250716
  Serious: Yes (Other)
  Sender: ROCHE
  Company Number: PT-ROCHE-10000221084

PATIENT

DRUGS (1)
  1. FARICIMAB [Suspect]
     Active Substance: FARICIMAB
     Indication: Central serous chorioretinopathy
     Route: 065

REACTIONS (3)
  - Visual acuity reduced [Recovered/Resolved]
  - Off label use [Unknown]
  - Uveitis [Unknown]
